FAERS Safety Report 10670678 (Version 1)
Quarter: 2014Q4

REPORT INFORMATION
  Report Type: Spontaneous
  Country: CA (occurrence: None)
  Receive Date: 20141219
  Receipt Date: 20141219
  Transmission Date: 20150529
  Serious: Yes (Life-Threatening, Hospitalization)
  Sender: FDA-Public Use
  Company Number: A1072499A

PATIENT
  Age: 26 Year
  Sex: Female

DRUGS (11)
  1. PAROXETINE HYDROCHLORIDE TABLETS [Suspect]
     Active Substance: PAROXETINE HYDROCHLORIDE
     Indication: ILL-DEFINED DISORDER
  2. FOLIC AICD [Concomitant]
  3. IRON SALT [Concomitant]
  4. RIZATRIPTAN BENZOATE. [Concomitant]
     Active Substance: RIZATRIPTAN BENZOATE
  5. VITAMIN E [Concomitant]
     Active Substance: .ALPHA.-TOCOPHEROL
  6. OMEGA-3 MARINE TRIGLYCERIDES [Concomitant]
     Active Substance: FISH OIL
  7. NUTRUTIONAL SUPPLEMENT [Concomitant]
  8. ZOLMITRIPTAN?? [Concomitant]
  9. GABAPENTIN. [Concomitant]
     Active Substance: GABAPENTIN
  10. MULTIVITAMIN [Concomitant]
     Active Substance: VITAMINS
  11. MAGNESIUM SALT [Concomitant]

REACTIONS (6)
  - Bipolar disorder [None]
  - Condition aggravated [None]
  - Withdrawal syndrome [None]
  - Headache [None]
  - Suicidal ideation [None]
  - Pain [None]
